FAERS Safety Report 4349703-8 (Version None)
Quarter: 2004Q2

REPORT INFORMATION
  Report Type: 
  Country: None (occurrence: None)
  Receive Date: 20040426
  Receipt Date: 20040217
  Transmission Date: 20050107
  Serious: Yes (Other)
  Sender: FDA-Public Use
  Company Number: 2004010559

PATIENT
  Age: 12 Year
  Sex: Female
  Weight: 45.3597 kg

DRUGS (1)
  1. ZITHROMAX [Suspect]
     Indication: PNEUMONIA
     Dosage: (DAILY), ORAL
     Route: 048
     Dates: start: 20040212, end: 20040215

REACTIONS (1)
  - CONVULSION [None]
